FAERS Safety Report 8579952 (Version 3)
Quarter: 2012Q4

REPORT INFORMATION
  Report Type: 
  Country: ES (occurrence: ES)
  Receive Date: 20120525
  Receipt Date: 20120914
  Transmission Date: 20130627
  Serious: Yes (Other)
  Sender: FDA-Public Use
  Company Number: ES-PFIZER INC-2012121931

PATIENT
  Age: 66 Year
  Sex: Female

DRUGS (6)
  1. SOMAVERT [Suspect]
     Indication: ACROMEGALY
     Dosage: 10 mg, UNK
     Route: 058
     Dates: start: 20120120, end: 201203
  2. SOMAVERT [Suspect]
     Dosage: 15 mg, daily
     Route: 058
     Dates: start: 201203, end: 20120518
  3. EFFICIB [Concomitant]
     Dosage: one with lunch and dinner
  4. ATACAND PLUS [Concomitant]
     Dosage: 1 DF, 1x/day
  5. ATROVENT [Concomitant]
     Route: 055
  6. OMEPRAZOLE [Concomitant]
     Dosage: 1 DF, 1x/day

REACTIONS (1)
  - Lipodystrophy acquired [Recovering/Resolving]
